FAERS Safety Report 25462322 (Version 4)
Quarter: 2025Q3

REPORT INFORMATION
  Report Type: Spontaneous
  Country: BR (occurrence: BR)
  Receive Date: 20250620
  Receipt Date: 20250717
  Transmission Date: 20251021
  Serious: No
  Sender: PFIZER
  Company Number: BR-PFIZER INC-PV202500070703

PATIENT
  Age: 12 Year
  Sex: Male

DRUGS (1)
  1. SOMATROGON [Suspect]
     Active Substance: SOMATROGON
     Dates: start: 20250328

REACTIONS (3)
  - Incorrect dose administered by device [Unknown]
  - Device use error [Unknown]
  - Device defective [Unknown]
